FAERS Safety Report 4926865-2 (Version None)
Quarter: 2006Q1

REPORT INFORMATION
  Report Type: 
  Country: None (occurrence: None)
  Receive Date: 20060228
  Receipt Date: 20050707
  Transmission Date: 20060701
  Serious: Yes (Other)
  Sender: FDA-Public Use
  Company Number: US-GLAXOSMITHKLINE-A0565304A

PATIENT
  Age: 38 Year
  Sex: Female
  Weight: 90.9 kg

DRUGS (1)
  1. LAMICTAL [Suspect]
     Indication: BIPOLAR DISORDER
     Route: 048
     Dates: start: 20050627, end: 20050730

REACTIONS (3)
  - LYMPHADENOPATHY [None]
  - PYREXIA [None]
  - RASH [None]
